FAERS Safety Report 8836384 (Version 5)
Quarter: 2018Q4

REPORT INFORMATION
  Report Type: Spontaneous
  Country: US (occurrence: US)
  Receive Date: 20121011
  Receipt Date: 20181204
  Transmission Date: 20190205
  Serious: Yes (Hospitalization, Disabling, Other)
  Sender: FDA-Public Use
  Company Number: US-009507513-1210USA003146

PATIENT
  Sex: Female
  Weight: 56.24 kg

DRUGS (2)
  1. FOSAMAX [Suspect]
     Active Substance: ALENDRONATE SODIUM
     Dosage: 70 MILLIGRAM
     Route: 048
  2. FOSAMAX [Suspect]
     Active Substance: ALENDRONATE SODIUM
     Indication: OSTEOPENIA
     Dosage: 70 MG, QW
     Route: 048
     Dates: start: 200104, end: 200806

REACTIONS (39)
  - Clostridium difficile colitis [Unknown]
  - Calcium deficiency [Unknown]
  - Asthma [Unknown]
  - Device failure [Unknown]
  - Hypertension [Unknown]
  - Haemorrhagic anaemia [Unknown]
  - Sepsis [Unknown]
  - Electrocardiogram abnormal [Unknown]
  - Hypomagnesaemia [Unknown]
  - Hypoalbuminaemia [Unknown]
  - Osteonecrosis [Unknown]
  - Bursitis [Unknown]
  - Gastrooesophageal reflux disease [Unknown]
  - Irritable bowel syndrome [Unknown]
  - Hypokalaemia [Unknown]
  - Clostridium difficile infection [Unknown]
  - Hip arthroplasty [Unknown]
  - Vitamin D deficiency [Unknown]
  - Foot fracture [Unknown]
  - Chronic obstructive pulmonary disease [Unknown]
  - Seizure [Unknown]
  - Haemorrhagic anaemia [Unknown]
  - Hip surgery [Unknown]
  - Hyperlipidaemia [Unknown]
  - Dehydration [Unknown]
  - Foot fracture [Unknown]
  - Adverse event [Unknown]
  - Arthropathy [Unknown]
  - Chest pain [Unknown]
  - Gastritis [Unknown]
  - Muscle strain [Unknown]
  - Bone disorder [Unknown]
  - Pruritus [Unknown]
  - Femur fracture [Not Recovered/Not Resolved]
  - Osteoporosis [Unknown]
  - Osteoarthritis [Unknown]
  - Femur fracture [Unknown]
  - Limb operation [Unknown]
  - Upper respiratory tract infection [Unknown]

NARRATIVE: CASE EVENT DATE: 2004
